FAERS Safety Report 23331064 (Version 4)
Quarter: 2024Q1

REPORT INFORMATION
  Report Type: Spontaneous
  Country: AU (occurrence: None)
  Receive Date: 20231222
  Receipt Date: 20240112
  Transmission Date: 20240410
  Serious: Yes (Other)
  Sender: FDA-Public Use
  Company Number: AU-PFIZER INC-PV202300203247

PATIENT
  Age: 68 Year
  Sex: Female

DRUGS (6)
  1. METHOTREXATE [Suspect]
     Active Substance: METHOTREXATE
     Indication: Rheumatoid arthritis
     Dates: start: 201404, end: 2014
  2. METHOTREXATE [Suspect]
     Active Substance: METHOTREXATE
     Dates: start: 201407, end: 2020
  3. PREDNISOLONE [Suspect]
     Active Substance: PREDNISOLONE
     Indication: Rheumatoid arthritis
     Dates: start: 201404
  4. PREDNISOLONE [Suspect]
     Active Substance: PREDNISOLONE
     Dosage: PREDNISOLONE GRADUALLY REDUCED AND CEASED .
     Dates: end: 201511
  5. HYDROXYCHLOROQUINE [Suspect]
     Active Substance: HYDROXYCHLOROQUINE
     Indication: Rheumatoid arthritis
     Dates: start: 2014
  6. DENOSUMAB [Concomitant]
     Active Substance: DENOSUMAB
     Indication: Rheumatoid arthritis
     Dates: start: 201511

REACTIONS (5)
  - Bone disorder [Recovered/Resolved]
  - Arthralgia [Recovered/Resolved]
  - Stress fracture [Recovered/Resolved]
  - Foot fracture [Recovered/Resolved]
  - Osteoporosis [Unknown]

NARRATIVE: CASE EVENT DATE: 20200601
